FAERS Safety Report 7900506-4 (Version None)
Quarter: 2011Q4

REPORT INFORMATION
  Report Type: 
  Country: None (occurrence: None)
  Receive Date: 20111108
  Receipt Date: 20111031
  Transmission Date: 20120403
  Serious: Yes (Death, Other)
  Sender: FDA-Public Use
  Company Number: IT-BRISTOL-MYERS SQUIBB COMPANY-16205742

PATIENT
  Age: 89 Year
  Sex: Female

DRUGS (10)
  1. ENALAPRIL MALEATE [Concomitant]
  2. COUMADIN [Suspect]
     Indication: ATRIAL FIBRILLATION
     Dosage: 1DF: 1UNIT
     Route: 048
  3. ZOLPIDEM [Concomitant]
  4. LASIX [Concomitant]
     Dosage: 1DF: 1UNIT
  5. ZOLOFT [Concomitant]
  6. SEROQUEL [Concomitant]
  7. CARVEDILOL [Concomitant]
     Dosage: 1DF: 1.5 UNIT
  8. LANOXIN [Concomitant]
     Dosage: 1DF: 1UNIT
  9. OXYCODONE AND ACETAMINOPHEN [Concomitant]
  10. NEXIUM [Concomitant]

REACTIONS (2)
  - HEAD INJURY [None]
  - SUBDURAL HAEMATOMA [None]
